FAERS Safety Report 26041062 (Version 1)
Quarter: 2025Q4

REPORT INFORMATION
  Report Type: Spontaneous
  Country: US (occurrence: US)
  Receive Date: 20251113
  Receipt Date: 20251113
  Transmission Date: 20260117
  Serious: Yes (Other)
  Sender: CATALYST PHARMA
  Company Number: US-CATALYST PHARMACEUTICALS, INC-US-CATA-25-01232

PATIENT
  Sex: Male

DRUGS (5)
  1. FIRDAPSE [Suspect]
     Active Substance: AMIFAMPRIDINE PHOSPHATE
     Indication: Myasthenic syndrome
     Dosage: GRADUALLY INCREASED THE DOSE (INITIAL DOSE UNKNOWN)
     Route: 048
     Dates: start: 202201
  2. FIRDAPSE [Suspect]
     Active Substance: AMIFAMPRIDINE PHOSPHATE
     Dosage: GRADUALLY INCREASED THE DOSE TO 1.5 TABLETS EVERY 4 HOURS FOR A TOTAL OF 90 MG PER DAY
     Route: 048
  3. PYRIDOSTIGMINE (EXTENDED RELEASE) [Concomitant]
     Indication: Product used for unknown indication
     Dosage: 180 MG, TWICE A DAY
     Route: 065
  4. RITUXAN [Concomitant]
     Active Substance: RITUXIMAB
     Indication: Product used for unknown indication
     Dosage: EVERY FOUR MONTHS
     Route: 065
     Dates: start: 202109
  5. RITUXAN [Concomitant]
     Active Substance: RITUXIMAB
     Dosage: EVERY 5 MONTHS
     Route: 065

REACTIONS (9)
  - Neuropathy peripheral [Unknown]
  - Mobility decreased [Unknown]
  - Condition aggravated [Recovered/Resolved]
  - Fatigue [Unknown]
  - Cardiac disorder [Unknown]
  - Dry mouth [Unknown]
  - Muscle spasms [Unknown]
  - Asthenia [Unknown]
  - Product dose omission issue [Unknown]
